FAERS Safety Report 8586209-4 (Version None)
Quarter: 2012Q3

REPORT INFORMATION
  Report Type: 
  Country: None (occurrence: None)
  Receive Date: 20120810
  Receipt Date: 20120802
  Transmission Date: 20120928
  Serious: Yes (Other)
  Sender: FDA-Public Use
  Company Number: ES-GLAXOSMITHKLINE-B0821995A

PATIENT
  Age: 4 Year
  Sex: Male

DRUGS (1)
  1. CEFUROXIME [Suspect]
     Indication: PRODUCT USED FOR UNKNOWN INDICATION

REACTIONS (9)
  - WHEEZING [None]
  - DYSPNOEA [None]
  - EYELID OEDEMA [None]
  - SWELLING [None]
  - THROAT IRRITATION [None]
  - RHINORRHOEA [None]
  - ANAPHYLACTIC REACTION [None]
  - COUGH [None]
  - SNEEZING [None]
